FAERS Safety Report 5374648-4 (Version None)
Quarter: 2007Q2

REPORT INFORMATION
  Report Type: 
  Country: None (occurrence: None)
  Receive Date: 20070625
  Receipt Date: 20070410
  Transmission Date: 20071010
  Serious: Yes (Hospitalization)
  Sender: FDA-Public Use
  Company Number: 07P-163-0360477-00

PATIENT
  Age: 79 Year
  Sex: Male
  Weight: 88.4514 kg

DRUGS (23)
  1. HUMIRA [Suspect]
     Indication: RHEUMATOID ARTHRITIS
     Dosage: 40 MG, 1 IN 2 WK; 40 MG, 1 IN 2 WK
     Dates: start: 20040101, end: 20061001
  2. HUMIRA [Suspect]
     Indication: RHEUMATOID ARTHRITIS
     Dosage: 40 MG, 1 IN 2 WK; 40 MG, 1 IN 2 WK
     Dates: start: 20061101
  3. MORPHINE [Concomitant]
  4. VICODIN [Concomitant]
  5. NABUMETONE [Concomitant]
  6. METHYLPREDNISOLONE 4MG TAB [Concomitant]
  7. METHOTREXATE SODIUM [Concomitant]
  8. TERAZOSIN HYDROCHLORIDE [Concomitant]
  9. CENTRUM SILVER [Concomitant]
  10. ASCORBIC ACID [Concomitant]
  11. OMEGA 3 OIL [Concomitant]
  12. DOCUSATE SODIUM [Concomitant]
  13. LEVOTHYROXINE SODIUM [Concomitant]
  14. POTASSIUM CHLORIDE [Concomitant]
  15. ACENOSENOSIDES [Concomitant]
  16. HYDROXYCHLOROQUINE SULFATE [Concomitant]
  17. PROCHLORPERAZINE MALEATE [Concomitant]
  18. GABAPENTIN [Concomitant]
  19. NOVOLOG MIX 70/30 [Concomitant]
  20. MORPHINE [Concomitant]
  21. RANITIDINE HYDROCHLORIDE [Concomitant]
  22. STEROIDS [Concomitant]
  23. IMMUNOSUPPRESSIVE MEDICATIONS [Concomitant]

REACTIONS (6)
  - EAR INFECTION [None]
  - LYMPHOEDEMA [None]
  - NASOPHARYNGITIS [None]
  - PNEUMONIA [None]
  - RESPIRATORY TRACT CONGESTION [None]
  - UPPER RESPIRATORY TRACT INFECTION [None]
